FAERS Safety Report 10061605 (Version 1)
Quarter: 2014Q2

REPORT INFORMATION
  Report Type: Spontaneous
  Country: US (occurrence: None)
  Receive Date: 20140404
  Receipt Date: 20140404
  Transmission Date: 20141212
  Serious: Yes (Other)
  Sender: FDA-Public Use
  Company Number: None

PATIENT
  Age: 31 Year
  Sex: Female
  Weight: 58.97 kg

DRUGS (1)
  1. NITROFURANTOIN [Suspect]
     Indication: URINARY TRACT INFECTION
     Dosage: 10 PILLS?TWICE DAILY?TAKEN BY MOUTH
     Route: 048
     Dates: start: 20140324, end: 20140327

REACTIONS (3)
  - Eye swelling [None]
  - Visual impairment [None]
  - Swelling face [None]
